FAERS Safety Report 18216955 (Version 2)
Quarter: 2021Q1

REPORT INFORMATION
  Report Type: Report from Study
  Country: US (occurrence: US)
  Receive Date: 20200901
  Receipt Date: 20210105
  Transmission Date: 20210419
  Serious: No
  Sender: FDA-Public Use
  Company Number: US-SA-2020SA235667

PATIENT

DRUGS (9)
  1. PROPRANOLOL [Concomitant]
     Active Substance: PROPRANOLOL HYDROCHLORIDE
  2. LISINOPRIL. [Concomitant]
     Active Substance: LISINOPRIL
  3. TRIAMTERENE AND HYDROCHLOROTHIAZIDE [Concomitant]
     Active Substance: HYDROCHLOROTHIAZIDE\TRIAMTERENE
  4. DUPILUMAB [Suspect]
     Active Substance: DUPILUMAB
     Indication: DERMATITIS ATOPIC
     Dosage: 300 MG, QOW
     Route: 058
     Dates: start: 20181015
  5. METHIMAZOLE. [Concomitant]
     Active Substance: METHIMAZOLE
  6. NOVOLOG [Concomitant]
     Active Substance: INSULIN ASPART
  7. PRAVASTATIN. [Concomitant]
     Active Substance: PRAVASTATIN
  8. DUPILUMAB [Suspect]
     Active Substance: DUPILUMAB
     Dosage: 600 MG, 1X
     Route: 058
     Dates: start: 2019, end: 2019
  9. INSULIN [INSULIN HUMAN] [Concomitant]

REACTIONS (1)
  - Product dose omission in error [Unknown]
